FAERS Safety Report 7397578-5 (Version None)
Quarter: 2011Q2

REPORT INFORMATION
  Report Type: 
  Country: None (occurrence: None)
  Receive Date: 20110406
  Receipt Date: 20110331
  Transmission Date: 20111010
  Serious: Yes (Other)
  Sender: FDA-Public Use
  Company Number: FR-MERCK-1103FRA00186

PATIENT
  Age: 59 Year
  Sex: Male

DRUGS (8)
  1. ASPIRIN LYSINE [Suspect]
     Route: 048
  2. ATORVASTATIN CALCIUM [Suspect]
     Route: 048
  3. COZAAR [Suspect]
     Indication: HYPERTENSION
     Route: 048
  4. METHYLPREDNISOLONE [Suspect]
     Route: 048
     Dates: start: 20020101
  5. BROMAZEPAM [Suspect]
     Route: 048
     Dates: start: 20020101
  6. ZOLPIDEM TARTRATE [Suspect]
     Route: 048
     Dates: start: 20020101
  7. AZATHIOPRINE [Suspect]
     Route: 048
     Dates: start: 20021026, end: 20110103
  8. ESOMEPRAZOLE MAGNESIUM [Suspect]
     Route: 048

REACTIONS (1)
  - SQUAMOUS CELL CARCINOMA OF SKIN [None]
